FAERS Safety Report 8532372-0 (Version None)
Quarter: 2012Q3

REPORT INFORMATION
  Report Type: 
  Country: None (occurrence: None)
  Receive Date: 20120724
  Receipt Date: 20120713
  Transmission Date: 20120928
  Serious: Yes (Other)
  Sender: FDA-Public Use
  Company Number: US-BIOGENIDEC-2012BI025989

PATIENT
  Age: 32 Year
  Sex: Male

DRUGS (5)
  1. TYSABRI [Suspect]
     Indication: MULTIPLE SCLEROSIS
     Route: 042
     Dates: start: 20120111, end: 20120401
  2. AVONEX [Concomitant]
     Route: 030
     Dates: start: 20120624, end: 20120701
  3. AVONEX [Concomitant]
     Route: 030
     Dates: start: 20120708
  4. AVONEX [Concomitant]
     Route: 030
     Dates: start: 20120701, end: 20120708
  5. AVONEX [Concomitant]
     Indication: MULTIPLE SCLEROSIS
     Route: 030
     Dates: start: 20120619, end: 20120624

REACTIONS (10)
  - NEUROPATHY PERIPHERAL [None]
  - FATIGUE [None]
  - PULPITIS DENTAL [None]
  - DIPLOPIA [None]
  - APHASIA [None]
  - STRESS [None]
  - MEMORY IMPAIRMENT [None]
  - ANAPHYLACTIC REACTION [None]
  - PAIN IN EXTREMITY [None]
  - GAIT DISTURBANCE [None]
